FAERS Safety Report 8565356-7 (Version None)
Quarter: 2012Q3

REPORT INFORMATION
  Report Type: 
  Country: None (occurrence: None)
  Receive Date: 20120723
  Receipt Date: 20120713
  Transmission Date: 20120928
  Serious: Yes (Hospitalization)
  Sender: FDA-Public Use
  Company Number: DSA_58504_2012

PATIENT
  Age: 78 Year
  Sex: Male

DRUGS (7)
  1. PERMIXON [Concomitant]
  2. AMILORIDE HYDROCHLORIDE [Concomitant]
  3. MODOPAR [Suspect]
  4. POTASSIUM CHLORIDE [Concomitant]
  5. ZOLOFT [Concomitant]
  6. DILTIAZEM [Suspect]
     Indication: MEDICATION ERROR
     Dosage: (200 MG
     Dates: start: 20120616
  7. DIPYRIDAMOLE [Concomitant]

REACTIONS (3)
  - SOMNOLENCE [None]
  - BRADYCARDIA [None]
  - WRONG DRUG ADMINISTERED [None]
